FAERS Safety Report 8310300-0 (Version None)
Quarter: 2012Q2

REPORT INFORMATION
  Report Type: 
  Country: None (occurrence: None)
  Receive Date: 20120425
  Receipt Date: 20120417
  Transmission Date: 20120825
  Serious: Yes (Death)
  Sender: FDA-Public Use
  Company Number: CH-ROXANE LABORATORIES, INC.-2012-RO-01083RO

PATIENT
  Age: 45 Year
  Sex: Male

DRUGS (2)
  1. OXAZEPAM [Suspect]
  2. LORAZEPAM [Suspect]

REACTIONS (1)
  - HYPOTHERMIA [None]
